FAERS Safety Report 11664287 (Version 2)
Quarter: 2015Q4

REPORT INFORMATION
  Report Type: Report from Study
  Country: JP (occurrence: JP)
  Receive Date: 20151027
  Receipt Date: 20151117
  Transmission Date: 20160304
  Serious: Yes (Hospitalization)
  Sender: FDA-Public Use
  Company Number: JP-EISAI MEDICAL RESEARCH-EC-2015-009832

PATIENT
  Age: 35 Year
  Sex: Male
  Weight: 58 kg

DRUGS (8)
  1. PERAMPANEL [Suspect]
     Active Substance: PERAMPANEL
     Indication: PARTIAL SEIZURES
     Dosage: CORE STUDY
     Route: 048
     Dates: start: 20140121, end: 20140630
  2. KEPPRA [Concomitant]
     Active Substance: LEVETIRACETAM
  3. PHENOBAL [Suspect]
     Active Substance: PHENOBARBITAL
     Indication: EPILEPSY
     Route: 048
     Dates: start: 20130820
  4. ROZEREM [Concomitant]
     Active Substance: RAMELTEON
  5. PERAMPANEL [Suspect]
     Active Substance: PERAMPANEL
     Dosage: CONVERSION
     Route: 048
     Dates: start: 20140701, end: 20140811
  6. TEGRETOL [Concomitant]
     Active Substance: CARBAMAZEPINE
  7. REFLEX [Concomitant]
     Active Substance: MIRTAZAPINE
  8. PERAMPANEL [Suspect]
     Active Substance: PERAMPANEL
     Route: 048
     Dates: start: 20140812, end: 20151018

REACTIONS (2)
  - Psychotic disorder [Recovering/Resolving]
  - Epilepsy [Recovered/Resolved]

NARRATIVE: CASE EVENT DATE: 20150819
